FAERS Safety Report 6495623-2 (Version None)
Quarter: 2009Q4

REPORT INFORMATION
  Report Type: 
  Country: None (occurrence: None)
  Receive Date: 20091214
  Receipt Date: 20090724
  Transmission Date: 20100525
  Serious: No
  Sender: FDA-Public Use
  Company Number: US-BRISTOL-MYERS SQUIBB COMPANY-14715098

PATIENT
  Age: 58 Year
  Sex: Female

DRUGS (2)
  1. ABILIFY [Suspect]
     Indication: AFFECTIVE DISORDER
     Dosage: DISCONTINUED AFTER 3 WEEKS
     Dates: start: 20090225, end: 20090101
  2. CELEXA [Suspect]
     Indication: AFFECTIVE DISORDER

REACTIONS (1)
  - BLOOD GLUCOSE INCREASED [None]
